FAERS Safety Report 8777086 (Version 5)
Quarter: 2012Q4

REPORT INFORMATION
  Report Type: 
  Country: GB (occurrence: GB)
  Receive Date: 20120911
  Receipt Date: 20121026
  Transmission Date: 20130627
  Serious: Yes (Hospitalization, Other)
  Sender: FDA-Public Use
  Company Number: PHFR2012GB004727

PATIENT
  Age: 53 Year
  Sex: Male

DRUGS (4)
  1. CLOZARIL [Suspect]
     Indication: SCHIZOPHRENIA
     Dosage: 75 mg, UNK
     Route: 048
     Dates: start: 20120821, end: 20120826
  2. RISPERIDONE [Concomitant]
     Dosage: 3 mg, UNK
     Route: 048
  3. LAMOTRIGINE [Concomitant]
     Dosage: 150 mg, UNK
     Route: 048
  4. LEVOTHYROXINE [Concomitant]
     Dosage: 150 mg, UNK
     Route: 048

REACTIONS (6)
  - Oxygen saturation decreased [Recovered/Resolved]
  - Epilepsy [Recovered/Resolved]
  - Gait disturbance [Recovered/Resolved]
  - Disorientation [Recovered/Resolved]
  - Confusional state [Recovered/Resolved]
  - Somnolence [Recovered/Resolved]
